FAERS Safety Report 9480568 (Version 1)
Quarter: 2013Q3

REPORT INFORMATION
  Report Type: Spontaneous
  Country: US (occurrence: US)
  Receive Date: 20130828
  Receipt Date: 20130828
  Transmission Date: 20140515
  Serious: Yes (Hospitalization, Other)
  Sender: FDA-Public Use
  Company Number: US-AMGEN-KDL111916

PATIENT
  Age: 75 Year
  Sex: Female

DRUGS (1)
  1. ENBREL [Suspect]
     Indication: OSTEOARTHRITIS
     Dosage: UNK UNK, UNK
     Route: 065
     Dates: start: 20010101, end: 20010201

REACTIONS (1)
  - Bacteraemia [Recovered/Resolved]
